FAERS Safety Report 4694219-2 (Version None)
Quarter: 2005Q2

REPORT INFORMATION
  Report Type: 
  Country: None (occurrence: None)
  Receive Date: 20050616
  Receipt Date: 20050616
  Transmission Date: 20051028
  Serious: No
  Sender: FDA-Public Use
  Company Number: None

PATIENT
  Age: 39 Year
  Sex: Female
  Weight: 58.0604 kg

DRUGS (8)
  1. DURAGESIC-100 [Suspect]
     Indication: INTERVERTEBRAL DISC DISORDER
     Dosage: ONE PATCH Q 48 -72 HOURS
  2. DURAGESIC-100 [Suspect]
     Indication: MIGRAINE
     Dosage: ONE PATCH Q 48 -72 HOURS
  3. PROTONIX [Concomitant]
  4. DESYREL [Concomitant]
  5. GABITRIL [Concomitant]
  6. LEXAPRO [Concomitant]
  7. WELLBUTRIN SR [Concomitant]
  8. PHENEGEN [Concomitant]

REACTIONS (10)
  - ANXIETY [None]
  - DIARRHOEA [None]
  - DRUG EFFECT DECREASED [None]
  - DRUG WITHDRAWAL SYNDROME [None]
  - HYPERHIDROSIS [None]
  - NAUSEA [None]
  - PHARMACEUTICAL PRODUCT COMPLAINT [None]
  - PYREXIA [None]
  - THERAPEUTIC RESPONSE UNEXPECTED WITH DRUG SUBSTITUTION [None]
  - VOMITING [None]
